FAERS Safety Report 24160937 (Version 1)
Quarter: 2024Q3

REPORT INFORMATION
  Report Type: Spontaneous
  Country: ES (occurrence: ES)
  Receive Date: 20240801
  Receipt Date: 20240801
  Transmission Date: 20241016
  Serious: Yes (Other)
  Sender: TAKEDA
  Company Number: None

PATIENT
  Age: 57 Year
  Sex: Male

DRUGS (2)
  1. MESALAMINE [Suspect]
     Active Substance: MESALAMINE
     Indication: Colitis ulcerative
     Dosage: UNK UNK, TID
     Route: 048
     Dates: start: 201203, end: 202312
  2. ISONIAZID\PYRIDOXINE HYDROCHLORIDE [Suspect]
     Active Substance: ISONIAZID\PYRIDOXINE HYDROCHLORIDE
     Indication: Tuberculosis
     Dosage: UNK UNK, QD
     Route: 048
     Dates: start: 202307, end: 202308

REACTIONS (1)
  - Hepatitis cholestatic [Recovered/Resolved]

NARRATIVE: CASE EVENT DATE: 20230701
